FAERS Safety Report 8011305-X (Version None)
Quarter: 2011Q4

REPORT INFORMATION
  Report Type: 
  Country: None (occurrence: None)
  Receive Date: 20111228
  Receipt Date: 20111223
  Transmission Date: 20120403
  Serious: Yes (Other)
  Sender: FDA-Public Use
  Company Number: BR-PFIZER INC-2011222549

PATIENT
  Age: 64 Year
  Sex: Female
  Weight: 50 kg

DRUGS (5)
  1. VARENICLINE TARTRATE [Suspect]
     Indication: TOBACCO USER
     Dosage: UNK
     Route: 048
     Dates: start: 20110902
  2. NAPRIX D [Concomitant]
     Indication: HYPERTENSION
     Dosage: 1 TABLET DAILY
     Dates: start: 20060101
  3. VARENICLINE TARTRATE [Suspect]
     Dosage: 1 MG, EVERY 12 HOURS
     Route: 048
     Dates: end: 20110101
  4. BUPROPION [Concomitant]
     Indication: TOBACCO USER
     Dosage: UNK
     Dates: start: 20110903
  5. ATORVASTATIN [Concomitant]
     Indication: BLOOD CHOLESTEROL ABNORMAL
     Dosage: UNK
     Dates: start: 20050101

REACTIONS (4)
  - GASTROOESOPHAGEAL REFLUX DISEASE [None]
  - HYPERTENSION [None]
  - EMOTIONAL DISORDER [None]
  - WEIGHT DECREASED [None]
